FAERS Safety Report 7326132-6 (Version None)
Quarter: 2011Q1

REPORT INFORMATION
  Report Type: 
  Country: None (occurrence: None)
  Receive Date: 20110302
  Receipt Date: 20110223
  Transmission Date: 20110831
  Serious: No
  Sender: FDA-Public Use
  Company Number: US-ROXANE LABORATORIES, INC.-2011-RO-00041RO

PATIENT
  Sex: Male

DRUGS (6)
  1. LAMOTRIGINE [Concomitant]
     Indication: DEPRESSION
  2. LORAZEPAM [Concomitant]
     Indication: ANXIETY
  3. TESTOSTERONE [Concomitant]
     Indication: BLOOD TESTOSTERONE DECREASED
  4. BUPROPION HCL [Concomitant]
     Indication: DEPRESSION
  5. OXYMORPHONE HYDROCHLORIDE [Suspect]
     Indication: PAIN
     Route: 048
     Dates: start: 20101222
  6. SERTRALINE [Concomitant]
     Indication: DEPRESSION

REACTIONS (1)
  - DRUG INEFFECTIVE [None]
